FAERS Safety Report 5567013-8 (Version None)
Quarter: 2007Q4

REPORT INFORMATION
  Report Type: 
  Country: None (occurrence: None)
  Receive Date: 20071219
  Receipt Date: 20071211
  Transmission Date: 20080405
  Serious: No
  Sender: FDA-Public Use
  Company Number: JP-ELI_LILLY_AND_COMPANY-JP200712001357

PATIENT
  Sex: Female
  Weight: 53 kg

DRUGS (7)
  1. RALOXIFENE HYDROCHLORIDE [Suspect]
     Indication: OSTEOPOROSIS POSTMENOPAUSAL
     Dosage: 60 MG, DAILY (1/D)
     Route: 048
     Dates: start: 20050609, end: 20060123
  2. HALCION [Concomitant]
     Indication: INSOMNIA
     Dosage: 0.25 MG, DAILY (1/D)
     Route: 048
  3. THYRADIN S [Concomitant]
     Indication: HYPOTHYROIDISM
     Dosage: 50 UG, DAILY (1/D)
     Route: 048
  4. AMLODIN [Concomitant]
     Indication: HYPERTENSION
     Dosage: 5 MG, DAILY (1/D)
     Route: 048
  5. LOPRESSOR [Concomitant]
     Indication: ARRHYTHMIA
     Dosage: 20 MG, DAILY (1/D)
     Route: 048
     Dates: start: 20051027
  6. CONSTAN [Concomitant]
     Indication: INSOMNIA
     Dosage: 0.4 MG, DAILY (1/D)
     Route: 048
  7. EPERISONE HYDROCHLORIDE [Concomitant]
     Indication: OSTEOARTHRITIS
     Dosage: 50 MG, DAILY (1/D)
     Route: 048

REACTIONS (1)
  - HOSPITALISATION [None]
